FAERS Safety Report 5502504-7 (Version None)
Quarter: 2007Q4

REPORT INFORMATION
  Report Type: 
  Country: None (occurrence: None)
  Receive Date: 20071030
  Receipt Date: 20071023
  Transmission Date: 20080405
  Serious: Yes (Other)
  Sender: FDA-Public Use
  Company Number: US-PFIZER INC-2007089527

PATIENT
  Sex: Male
  Weight: 106.6 kg

DRUGS (1)
  1. NICOTROL [Suspect]
     Indication: SMOKING CESSATION THERAPY
     Route: 055

REACTIONS (3)
  - DENTAL CARIES [None]
  - TOOTH DISORDER [None]
  - TOOTH FRACTURE [None]
